FAERS Safety Report 6404181-X (Version None)
Quarter: 2009Q4

REPORT INFORMATION
  Report Type: 
  Country: None (occurrence: None)
  Receive Date: 20091016
  Receipt Date: 20080530
  Transmission Date: 20100525
  Serious: Yes (Hospitalization)
  Sender: FDA-Public Use
  Company Number: FR-PFIZER INC-2009265057

PATIENT
  Age: 44 Year

DRUGS (4)
  1. EPIRUBICIN HCL [Suspect]
     Indication: GASTRIC CANCER
     Dosage: 50 MG/M2, CYCLIC
     Route: 042
     Dates: start: 20071003, end: 20071003
  2. CISPLATIN [Suspect]
     Indication: GASTRIC CANCER
     Dosage: 60 MG/M2, CYCLIC
     Route: 042
     Dates: start: 20071003, end: 20071003
  3. CAPECITABINE [Suspect]
     Indication: GASTRIC CANCER
     Dosage: 1000 MG/M2, CYCLIC
     Route: 048
     Dates: start: 20071003, end: 20071018
  4. DURAGESIC-100 [Concomitant]
     Indication: PAIN
     Dosage: 25 UG/DAY
     Route: 062
     Dates: start: 20070901

REACTIONS (1)
  - SUBILEUS [None]
